FAERS Safety Report 7082137-4 (Version None)
Quarter: 2010Q4

REPORT INFORMATION
  Report Type: 
  Country: None (occurrence: None)
  Receive Date: 20101103
  Receipt Date: 20101022
  Transmission Date: 20110411
  Serious: Yes (Hospitalization)
  Sender: FDA-Public Use
  Company Number: JP-GILEAD-2010-0032886

PATIENT
  Sex: Male

DRUGS (6)
  1. TRUVADA [Suspect]
     Indication: HIV INFECTION
     Route: 048
     Dates: start: 20090223
  2. EFAVIRENZ [Suspect]
     Indication: HIV INFECTION
     Route: 048
     Dates: start: 20090223
  3. VALGANCICLOVIR HCL [Concomitant]
     Indication: HIV INFECTION
     Dates: start: 20090214, end: 20090708
  4. VALGANCICLOVIR HCL [Concomitant]
     Dates: start: 20090131, end: 20090213
  5. MYCOBUTIN [Concomitant]
     Dates: start: 20090312, end: 20091014
  6. ESANBUTOL [Concomitant]
     Dates: start: 20090312, end: 20091014

REACTIONS (1)
  - HERPES ZOSTER [None]
